FAERS Safety Report 16322778 (Version 1)
Quarter: 2019Q2

REPORT INFORMATION
  Report Type: Spontaneous
  Country: US (occurrence: US)
  Receive Date: 20190516
  Receipt Date: 20190516
  Transmission Date: 20190711
  Serious: No
  Sender: FDA-Public Use
  Company Number: US-KYOWAKIRIN-2019BKK000884

PATIENT

DRUGS (1)
  1. CRYSVITA [Suspect]
     Active Substance: BUROSUMAB-TWZA
     Indication: HEREDITARY HYPOPHOSPHATAEMIC RICKETS
     Dosage: 90 MG, 1X/4 WEEKS
     Route: 058
     Dates: start: 20180926

REACTIONS (5)
  - Abdominal pain [Recovered/Resolved]
  - Urine calcium decreased [Unknown]
  - Blood parathyroid hormone increased [Unknown]
  - Urine calcium increased [Recovered/Resolved]
  - Creatinine urine increased [Recovered/Resolved]

NARRATIVE: CASE EVENT DATE: 20181012
